FAERS Safety Report 4421962-2 (Version None)
Quarter: 2004Q3

REPORT INFORMATION
  Report Type: 
  Country: None (occurrence: None)
  Receive Date: 20040809
  Receipt Date: 20040809
  Transmission Date: 20050211
  Serious: Yes (Life-Threatening)
  Sender: FDA-Public Use
  Company Number: None

PATIENT
  Age: 69 Year
  Sex: Male
  Weight: 91.6266 kg

DRUGS (9)
  1. CELEBREX [Suspect]
     Indication: COLONIC POLYP
     Dosage: 200 MG QID/STARTED IN FEBRUARYBY ANOTHER DOCTOR
     Dates: start: 20040201
  2. CELEBREX [Suspect]
     Indication: PROPHYLAXIS
     Dosage: 200 MG QID/STARTED IN FEBRUARYBY ANOTHER DOCTOR
     Dates: start: 20040201
  3. ASPIRIN [Concomitant]
  4. LISINOPRIL [Concomitant]
  5. AMIODARONE HCL [Concomitant]
  6. PRIMIDONE [Concomitant]
  7. TRAZODONE [Concomitant]
  8. LIPITOR [Concomitant]
  9. FLOMAX [Concomitant]

REACTIONS (1)
  - PANCREATITIS [None]
